FAERS Safety Report 8570195-7 (Version None)
Quarter: 2012Q3

REPORT INFORMATION
  Report Type: 
  Country: None (occurrence: None)
  Receive Date: 20120803
  Receipt Date: 20120730
  Transmission Date: 20120928
  Serious: Yes (Hospitalization)
  Sender: FDA-Public Use
  Company Number: PHHY2012IT066019

PATIENT
  Sex: Male

DRUGS (1)
  1. CEFTRIAXONE [Suspect]
     Indication: TOOTH ABSCESS
     Dosage: 1 G, UNK
     Route: 030
     Dates: start: 20120711

REACTIONS (1)
  - PRESYNCOPE [None]
